FAERS Safety Report 9679987 (Version 2)
Quarter: 2013Q4

REPORT INFORMATION
  Report Type: Report from Study
  Country: BR (occurrence: BR)
  Receive Date: 20131110
  Receipt Date: 20131205
  Transmission Date: 20140711
  Serious: Yes (Other)
  Sender: FDA-Public Use
  Company Number: PHHY2013BR127083

PATIENT
  Sex: Female
  Weight: 71.5 kg

DRUGS (4)
  1. DIOVAN HCT [Suspect]
     Indication: HYPERTENSION
     Dosage: 1 TABLET (160/12.5 MG) DAILY
     Route: 048
  2. ALENIA                             /01538101/ [Concomitant]
     Indication: BRONCHOPULMONARY DISEASE
     Dosage: 6/200 UG, Q12H
  3. ALENIA                             /01538101/ [Concomitant]
     Indication: DYSPNOEA
  4. BUSONID [Concomitant]
     Indication: NASAL CONGESTION
     Dosage: UNK UKN, PRN (AS NEEDED EVERY 12 HOURS)

REACTIONS (7)
  - White blood cell count increased [Unknown]
  - Cataract [Unknown]
  - Bronchopulmonary disease [Unknown]
  - Asthma [Unknown]
  - Scoliosis [Unknown]
  - Osteoarthritis [Unknown]
  - Osteoporosis [Unknown]
